FAERS Safety Report 4844048-1 (Version None)
Quarter: 2005Q4

REPORT INFORMATION
  Report Type: 
  Country: None (occurrence: None)
  Receive Date: 20051129
  Receipt Date: 20051118
  Transmission Date: 20060501
  Serious: Yes (Hospitalization, Other)
  Sender: FDA-Public Use
  Company Number: 200510750BFR

PATIENT
  Sex: Male

DRUGS (1)
  1. MOXIFLOXACIN HYDROCHLORIDE [Suspect]
     Indication: SINUSITIS
     Dosage: 400 MG, QD, ORAL
     Route: 048

REACTIONS (3)
  - CHILLS [None]
  - CONFUSIONAL STATE [None]
  - ELECTROCARDIOGRAM ABNORMAL [None]
